FAERS Safety Report 8772457 (Version 3)
Quarter: 2013Q3

REPORT INFORMATION
  Report Type: Report from Study
  Country: JP (occurrence: JP)
  Receive Date: 20120905
  Receipt Date: 20130717
  Transmission Date: 20140515
  Serious: Yes (Other)
  Sender: FDA-Public Use
  Company Number: JP-009507513-1208JPN010216

PATIENT
  Age: 68 Year
  Sex: Female
  Weight: 62 kg

DRUGS (27)
  1. PEGINTRON [Suspect]
     Indication: CHRONIC HEPATITIS C
     Dosage: 1.5 MICROGRAM PER KILOGRAM, QW
     Route: 058
     Dates: start: 20120508, end: 20120515
  2. PEGINTRON [Suspect]
     Dosage: 1.3 MICROGRAM PER KILOGRAM, QW
     Route: 058
     Dates: start: 20120522, end: 20120605
  3. PEGINTRON [Suspect]
     Dosage: 0.8 MICROGRAM PER KILOGRAM, UNK
     Route: 058
     Dates: start: 20120612, end: 20120612
  4. PEGINTRON [Suspect]
     Dosage: 1 MICROGRAM PER KILOGRAM, QW
     Route: 058
     Dates: start: 20120619, end: 20120703
  5. PEGINTRON [Suspect]
     Dosage: 1.1 MICROGRAM PER KILOGRAM, QW
     Route: 058
     Dates: start: 20120710, end: 20120717
  6. PEGINTRON [Suspect]
     Dosage: 0.95 MICROGRAM PER KILOGRAM, QW
     Route: 058
     Dates: start: 20120724, end: 20120814
  7. PEGINTRON [Suspect]
     Dosage: 1.0 MICROGRAM PER KILOGRAM, QW
     Route: 058
     Dates: start: 20120821, end: 20120828
  8. PEGINTRON [Suspect]
     Dosage: 1.1 MICROGRAM PER KILOGRAM, QW
     Route: 058
     Dates: start: 20120904, end: 20120911
  9. PEGINTRON [Suspect]
     Dosage: 1.3 MICROGRAM PER KILOGRAM, QW
     Route: 058
     Dates: start: 20120918
  10. REBETOL [Suspect]
     Indication: CHRONIC HEPATITIS C
     Dosage: 600 MG, QD
     Route: 048
     Dates: start: 20120508, end: 20120611
  11. REBETOL [Suspect]
     Dosage: 200 MG, QD
     Route: 048
     Dates: start: 20120612, end: 20120618
  12. REBETOL [Suspect]
     Dosage: 200 MG, EVERY OTHER DAY
     Route: 048
     Dates: start: 20120619, end: 20120716
  13. REBETOL [Suspect]
     Dosage: 200 MG, QD
     Route: 048
     Dates: start: 20120717, end: 20120820
  14. REBETOL [Suspect]
     Dosage: 300 UNK, UNK
     Route: 048
     Dates: start: 20120821
  15. TELAVIC [Suspect]
     Indication: CHRONIC HEPATITIS C
     Dosage: 1500 MG ONCE DAILY
     Route: 048
     Dates: start: 20120508, end: 20120521
  16. TELAVIC [Suspect]
     Dosage: 750 MG, BID
     Route: 048
     Dates: start: 20120522, end: 20120716
  17. TELAVIC [Suspect]
     Dosage: 500 MG, QD
     Route: 048
     Dates: start: 20120717, end: 20120731
  18. URSO [Concomitant]
     Indication: CHRONIC HEPATITIS C
     Dosage: 600 MG, QD
     Route: 048
     Dates: end: 20120523
  19. MYSER (CYCLOSERINE) [Concomitant]
     Indication: RASH
     Dosage: AS NEEDED
     Route: 061
     Dates: end: 20120605
  20. ACTOS [Concomitant]
     Indication: DIABETES MELLITUS
     Dosage: 15 MG, QD
     Route: 048
  21. GLIMEPIRIDE [Concomitant]
     Indication: DIABETES MELLITUS
     Dosage: 2 MG, QD
     Route: 048
  22. JANUVIA TABLETS 50MG [Concomitant]
     Indication: DIABETES MELLITUS
     Dosage: 50 MG, QD
     Route: 048
  23. SEIBULE [Concomitant]
     Indication: DIABETES MELLITUS
     Dosage: 150 MG, QD
     Route: 048
  24. CO DIO [Concomitant]
     Indication: HYPERTENSION
     Dosage: 1 DF, QD
     Route: 048
     Dates: end: 20120714
  25. ALOSITOL [Concomitant]
     Indication: HYPERURICAEMIA
     Dosage: 100 MG, QD
     Route: 048
     Dates: start: 20120508
  26. RESTAMIN [Concomitant]
     Indication: RASH
     Dosage: UNK
     Route: 061
     Dates: start: 20110511
  27. MIYA BM [Concomitant]
     Indication: PROPHYLAXIS
     Dosage: 3 G, QD
     Route: 048
     Dates: start: 20120704

REACTIONS (2)
  - Agranulocytosis [Unknown]
  - Neutropenia [Recovered/Resolved]
